FAERS Safety Report 7424650-3 (Version None)
Quarter: 2011Q2

REPORT INFORMATION
  Report Type: 
  Country: None (occurrence: None)
  Receive Date: 20110419
  Receipt Date: 20110413
  Transmission Date: 20111010
  Serious: Yes (Hospitalization, Other)
  Sender: FDA-Public Use
  Company Number: US-SANOFI-AVENTIS-2011SA023163

PATIENT
  Sex: Male

DRUGS (3)
  1. LANTUS [Suspect]
     Dosage: DOSE:30 UNIT(S)
     Route: 058
     Dates: start: 20110301
  2. LANTUS [Suspect]
     Route: 058
     Dates: end: 20090301
  3. SOLOSTAR [Suspect]

REACTIONS (3)
  - DIABETIC RETINOPATHY [None]
  - CORONARY ARTERY BYPASS [None]
  - BRONCHOPNEUMONIA [None]
